FAERS Safety Report 25100040 (Version 1)
Quarter: 2025Q1

REPORT INFORMATION
  Report Type: Spontaneous
  Country: US (occurrence: None)
  Receive Date: 20250320
  Receipt Date: 20250320
  Transmission Date: 20250408
  Serious: Yes (Hospitalization)
  Sender: FDA-CTU
  Company Number: None

PATIENT
  Age: 52 Year
  Sex: Male
  Weight: 100.9 kg

DRUGS (3)
  1. CYTARABINE [Suspect]
     Active Substance: CYTARABINE
     Dates: end: 20250311
  2. METHOTREXATE [Suspect]
     Active Substance: METHOTREXATE
     Dates: end: 20250308
  3. PONATINIB [Suspect]
     Active Substance: PONATINIB
     Dates: end: 20250312

REACTIONS (5)
  - Acute kidney injury [None]
  - Atrial fibrillation [None]
  - Haemodynamic instability [None]
  - Toxicity to various agents [None]
  - Nephropathy toxic [None]

NARRATIVE: CASE EVENT DATE: 20250309
